FAERS Safety Report 12277334 (Version 1)
Quarter: 2016Q2

REPORT INFORMATION
  Report Type: Report from Study
  Country: US (occurrence: US)
  Receive Date: 20160418
  Receipt Date: 20160418
  Transmission Date: 20160815
  Serious: Yes (Hospitalization)
  Sender: FDA-Public Use
  Company Number: US-ABBVIE-16K-163-1601422-00

PATIENT
  Age: 52 Year
  Sex: Female

DRUGS (2)
  1. HUMIRA [Suspect]
     Active Substance: ADALIMUMAB
     Indication: COLITIS ULCERATIVE
     Route: 058
     Dates: start: 20160121
  2. HUMIRA [Suspect]
     Active Substance: ADALIMUMAB
     Indication: CROHN^S DISEASE

REACTIONS (10)
  - Diabetes mellitus [Unknown]
  - Incorrect product storage [Unknown]
  - Poor quality drug administered [Recovered/Resolved]
  - Injection site rash [Unknown]
  - Injection site pruritus [Recovered/Resolved]
  - Injection site pruritus [Unknown]
  - Injection site swelling [Unknown]
  - Poor quality drug administered [Recovered/Resolved]
  - Injection site erythema [Unknown]
  - Injection site erythema [Recovered/Resolved]

NARRATIVE: CASE EVENT DATE: 2016
